FAERS Safety Report 4362658-5 (Version None)
Quarter: 2004Q2

REPORT INFORMATION
  Report Type: 
  Country: None (occurrence: None)
  Receive Date: 20040517
  Receipt Date: 20040507
  Transmission Date: 20050107
  Serious: Yes (Hospitalization)
  Sender: FDA-Public Use
  Company Number: 2004197175JP

PATIENT
  Age: 26 Year
  Sex: Female
  Weight: 52 kg

DRUGS (5)
  1. LINCOCIN [Suspect]
     Indication: UPPER RESPIRATORY TRACT INFLAMMATION
     Dosage: 600 MG, QD, INTRAMUSCULAR
     Route: 030
     Dates: start: 20040126, end: 20040127
  2. CEFACLOR [Suspect]
     Indication: UPPER RESPIRATORY TRACT INFLAMMATION
     Dosage: 250 MG, TID, ORAL
     Route: 048
     Dates: start: 20040126, end: 20040127
  3. RESPLEN (EPRAZINONE HYDROCHLORIDE) [Concomitant]
  4. SP (DEQUALINIUM CHLORIDE) [Concomitant]
  5. PLEVITA [Concomitant]

REACTIONS (13)
  - ABDOMINAL PAIN LOWER [None]
  - CHILLS [None]
  - DEFAECATION URGENCY [None]
  - DEPRESSED LEVEL OF CONSCIOUSNESS [None]
  - DIZZINESS [None]
  - HEADACHE [None]
  - LOSS OF CONSCIOUSNESS [None]
  - NASOPHARYNGITIS [None]
  - NAUSEA [None]
  - PHARYNGOLARYNGEAL PAIN [None]
  - PYREXIA [None]
  - RESPIRATORY ARREST [None]
  - SHOCK [None]
